FAERS Safety Report 9938173 (Version 2)
Quarter: 2014Q1

REPORT INFORMATION
  Report Type: Report from Study
  Country: US (occurrence: US)
  Receive Date: 20140303
  Receipt Date: 20140303
  Transmission Date: 20141002
  Serious: No
  Sender: FDA-Public Use
  Company Number: US-ABBVIE-12P-163-0979291-00

PATIENT
  Age: 45 Year
  Sex: Female

DRUGS (21)
  1. HUMIRA [Suspect]
     Indication: PSORIASIS
     Dates: start: 201206
  2. TRAMADOL [Concomitant]
     Indication: NECK PAIN
     Dosage: AT NIGHT
  3. TRAMADOL [Concomitant]
     Indication: MUSCULOSKELETAL PAIN
  4. DEXILANT [Concomitant]
     Indication: ILL-DEFINED DISORDER
     Dosage: AT LUNCH
  5. PRISTIQ [Concomitant]
     Indication: NERVOUSNESS
     Dosage: AT LUNCH
  6. PRISTIQ [Concomitant]
     Indication: HOT FLUSH
  7. BISOPROLOL [Concomitant]
     Indication: PRODUCT USED FOR UNKNOWN INDICATION
     Dosage: 2.5/6.25MG
  8. CYCLOBENZAPRINE [Concomitant]
     Indication: BACK PAIN
  9. EXCEDRIN [Concomitant]
     Indication: MIGRAINE
  10. DOXYCYCLINE [Concomitant]
     Indication: PAIN
     Dosage: EVERY DAY
  11. SIMVASTATIN [Concomitant]
     Indication: BLOOD CHOLESTEROL INCREASED
  12. KLOR-CON [Concomitant]
     Indication: PRODUCT USED FOR UNKNOWN INDICATION
  13. HYDRALAZINE [Concomitant]
     Indication: PRURITUS
  14. FLAX SEED OIL [Concomitant]
     Indication: PRODUCT USED FOR UNKNOWN INDICATION
  15. ZYRTEC [Concomitant]
     Indication: HYPERSENSITIVITY
  16. VIT D3 [Concomitant]
     Indication: PRODUCT USED FOR UNKNOWN INDICATION
  17. CO Q10 [Concomitant]
     Indication: PRODUCT USED FOR UNKNOWN INDICATION
  18. VITAMIN E [Concomitant]
     Indication: PRODUCT USED FOR UNKNOWN INDICATION
  19. GLUCOSAMINE [Concomitant]
     Indication: PRODUCT USED FOR UNKNOWN INDICATION
  20. COLACE [Concomitant]
     Indication: CONSTIPATION PROPHYLAXIS
  21. BACKAID MAX [Concomitant]
     Indication: PRODUCT USED FOR UNKNOWN INDICATION
     Dosage: DAILY

REACTIONS (12)
  - Device malfunction [Unknown]
  - Incorrect dose administered [Unknown]
  - Injection site pain [Not Recovered/Not Resolved]
  - Injection site discolouration [Not Recovered/Not Resolved]
  - Injection site erythema [Not Recovered/Not Resolved]
  - Injection site erythema [Recovered/Resolved]
  - Ear pain [Recovered/Resolved]
  - Ear pain [Recovered/Resolved]
  - Neck pain [Not Recovered/Not Resolved]
  - Musculoskeletal pain [Not Recovered/Not Resolved]
  - Injection site bruising [Not Recovered/Not Resolved]
  - Migraine [Not Recovered/Not Resolved]
